FAERS Safety Report 20678742 (Version 4)
Quarter: 2022Q3

REPORT INFORMATION
  Report Type: Spontaneous
  Country: JP (occurrence: JP)
  Receive Date: 20220406
  Receipt Date: 20220715
  Transmission Date: 20221027
  Serious: No
  Sender: FDA-Public Use
  Company Number: JP-GLAXOSMITHKLINE-JP2022JPN057467

PATIENT

DRUGS (10)
  1. SOTROVIMAB [Suspect]
     Active Substance: SOTROVIMAB
     Indication: COVID-19
     Dosage: 500 MG, QD
     Route: 041
     Dates: start: 20220116, end: 20220116
  2. DAPRODUSTAT [Concomitant]
     Active Substance: DAPRODUSTAT
     Dosage: UNK
     Route: 048
     Dates: start: 20220116, end: 20220116
  3. AZOSEMIDE TABLET [Concomitant]
     Dosage: UNK
     Route: 048
     Dates: start: 20220116, end: 20220116
  4. TORSEMIDE [Concomitant]
     Active Substance: TORSEMIDE
     Dosage: UNK
     Route: 048
     Dates: start: 20220116, end: 20220116
  5. LIPITOR TABLETS [Concomitant]
     Dosage: UNK
     Route: 048
     Dates: start: 20220116, end: 20220116
  6. PARIET TABLET [Concomitant]
     Dosage: UNK
     Route: 048
     Dates: start: 20220116, end: 20220116
  7. MAGNESIUM OXIDE [Concomitant]
     Active Substance: MAGNESIUM OXIDE
     Dosage: UNK
     Route: 048
     Dates: start: 20220116, end: 20220116
  8. ALFACALCIDOL [Concomitant]
     Active Substance: ALFACALCIDOL
     Dosage: UNK
     Route: 048
     Dates: start: 20220116, end: 20220116
  9. POTASSIUM CHLORIDE [Concomitant]
     Active Substance: POTASSIUM CHLORIDE
     Dosage: UNK
     Route: 048
     Dates: start: 20220116, end: 20220116
  10. EVOCALCET [Concomitant]
     Active Substance: EVOCALCET
     Dosage: UNK
     Route: 048
     Dates: start: 20220116, end: 20220116

REACTIONS (4)
  - Skin disorder [Recovering/Resolving]
  - Pruritus [Recovering/Resolving]
  - Rash [Recovering/Resolving]
  - Erythema [Recovering/Resolving]

NARRATIVE: CASE EVENT DATE: 20220116
